FAERS Safety Report 5253754-9 (Version None)
Quarter: 2007Q1

REPORT INFORMATION
  Report Type: 
  Country: None (occurrence: None)
  Receive Date: 20070227
  Receipt Date: 20070215
  Transmission Date: 20070707
  Serious: Yes (Other)
  Sender: FDA-Public Use
  Company Number: 2007BI003867

PATIENT
  Sex: Female

DRUGS (1)
  1. NATALIZUMAB [Suspect]
     Indication: MULTIPLE SCLEROSIS
     Dates: start: 20060101, end: 20070214

REACTIONS (5)
  - CARDIAC DISORDER [None]
  - FEELING HOT [None]
  - INFUSION RELATED REACTION [None]
  - MUSCLE SPASMS [None]
  - PYREXIA [None]
